FAERS Safety Report 6266177-0 (Version None)
Quarter: 2009Q3

REPORT INFORMATION
  Report Type: 
  Country: None (occurrence: None)
  Receive Date: 20090713
  Receipt Date: 20090708
  Transmission Date: 20100115
  Serious: No
  Sender: FDA-Public Use
  Company Number: JP-EISAI INC.-E2020-04876-SPO-JP

PATIENT
  Sex: Male

DRUGS (7)
  1. ARICEPT [Suspect]
     Indication: DEMENTIA ALZHEIMER'S TYPE
     Route: 048
  2. ARICEPT [Suspect]
     Route: 048
  3. MICARDIS [Concomitant]
     Route: 048
  4. NIVADIL [Concomitant]
     Route: 048
  5. PANALDINE [Concomitant]
     Route: 048
  6. NAUZELIN [Concomitant]
     Route: 048
  7. OMEPRAL [Concomitant]
     Route: 048

REACTIONS (1)
  - ALTERED STATE OF CONSCIOUSNESS [None]
